FAERS Safety Report 4977607-6 (Version None)
Quarter: 2006Q2

REPORT INFORMATION
  Report Type: 
  Country: None (occurrence: None)
  Receive Date: 20060414
  Receipt Date: 20060407
  Transmission Date: 20061013
  Serious: Yes (Hospitalization)
  Sender: FDA-Public Use
  Company Number: 200611491BCC

PATIENT
  Sex: Female

DRUGS (4)
  1. ALEVE [Suspect]
     Indication: SHOULDER PAIN
     Dosage: ORAL
     Route: 048
  2. BENADRYL [Suspect]
     Indication: ALLERGY TO ANIMAL
     Dosage: ORAL
     Route: 048
     Dates: start: 20060331, end: 20060401
  3. BENADRYL [Suspect]
     Indication: CONJUNCTIVITIS INFECTIVE
     Dosage: ORAL
     Route: 048
     Dates: start: 20060331, end: 20060401
  4. BENADRYL [Suspect]
     Indication: EYE SWELLING
     Dosage: ORAL
     Route: 048
     Dates: start: 20060331, end: 20060401

REACTIONS (5)
  - BLOOD PRESSURE SYSTOLIC INCREASED [None]
  - CHEST DISCOMFORT [None]
  - CHEST PAIN [None]
  - DIZZINESS [None]
  - DYSPNOEA [None]
